FAERS Safety Report 10225431 (Version 1)
Quarter: 2014Q1

REPORT INFORMATION
  Report Type: Spontaneous
  Country: US (occurrence: None)
  Receive Date: 20140306
  Receipt Date: 20140306
  Transmission Date: 20141002
  Serious: Yes (Other)
  Sender: FDA-Public Use
  Company Number: 163-21880-13090995

PATIENT
  Age: 69 Year
  Sex: Female
  Weight: 68.95 kg

DRUGS (7)
  1. REVLIMID [Suspect]
     Indication: PLASMA CELL MYELOMA
     Dosage: 5 MG, 21 IN 21 D. PO
     Route: 048
     Dates: start: 20110628
  2. NORVASC (AMLODIPINE BESILATE) [Concomitant]
  3. NEURONTIN (GABAPENTIN) [Concomitant]
  4. PRILOSEC (OMEPRAZOLE) [Concomitant]
  5. OXYCODONE HCL (OXYCODONE HYDROCHLORIDE) [Concomitant]
  6. ADULT LOW DOSE ASPIRIN (ACETYLSALICYLIC ACID) [Concomitant]
  7. IMODIUM (LOPERAMIDE HYDROCHLORIDE) [Concomitant]

REACTIONS (11)
  - Pharyngeal erythema [None]
  - Wheezing [None]
  - White blood cell count decreased [None]
  - Diarrhoea [None]
  - Asthenia [None]
  - Pyrexia [None]
  - Decreased appetite [None]
  - Full blood count decreased [None]
  - Bronchitis [None]
  - Appetite disorder [None]
  - Nausea [None]
